FAERS Safety Report 6182197-9 (Version None)
Quarter: 2009Q2

REPORT INFORMATION
  Report Type: 
  Country: None (occurrence: None)
  Receive Date: 20090507
  Receipt Date: 20090505
  Transmission Date: 20091009
  Serious: Yes (Other)
  Sender: FDA-Public Use
  Company Number: PHEH2008US00489

PATIENT
  Sex: Female
  Weight: 81.633 kg

DRUGS (8)
  1. COMBIPATCH [Suspect]
     Indication: MENOPAUSE
     Dosage: 0.5 MG, UNK
     Route: 062
     Dates: start: 20021001, end: 20030101
  2. PREMPRO [Suspect]
  3. PREMARIN [Suspect]
  4. ESTRADIOL [Suspect]
     Indication: MENOPAUSE
     Dosage: 0.5 MG, UNK
     Route: 062
     Dates: start: 19930721, end: 20051001
  5. MEDROXYPROGESTERONE [Suspect]
  6. PROVERA [Suspect]
     Indication: MENOPAUSE
     Dosage: 10 MG, UNK
     Dates: start: 19830101, end: 19830101
  7. PROVERA [Suspect]
     Dosage: 2.5 MG, UNK
     Dates: start: 19930721, end: 20051001
  8. ESTRACE [Suspect]
     Indication: MENOPAUSE
     Dosage: 1 MG, UNK
     Dates: start: 19930721, end: 19950101

REACTIONS (15)
  - BIOPSY [None]
  - BREAST CANCER [None]
  - BREAST DISORDER [None]
  - BREAST LUMP REMOVAL [None]
  - BREAST NEOPLASM [None]
  - CERVIX DISORDER [None]
  - COLONOSCOPY [None]
  - HEART RATE IRREGULAR [None]
  - HYPERCHOLESTEROLAEMIA [None]
  - HYPERTENSION [None]
  - NUCLEAR MAGNETIC RESONANCE IMAGING ABNORMAL [None]
  - OESTROGEN RECEPTOR ASSAY POSITIVE [None]
  - OSTEOPOROSIS [None]
  - PROGESTERONE RECEPTOR ASSAY POSITIVE [None]
  - RADIOTHERAPY [None]
